FAERS Safety Report 5868811-3 (Version None)
Quarter: 2008Q3

REPORT INFORMATION
  Report Type: 
  Country: None (occurrence: None)
  Receive Date: 20080902
  Receipt Date: 20080902
  Transmission Date: 20090109
  Serious: Yes (Life-Threatening, Hospitalization, Disabling)
  Sender: FDA-Public Use
  Company Number: None

PATIENT
  Age: 72 Year
  Sex: Female
  Weight: 61.2356 kg

DRUGS (1)
  1. DICLOFENAC SODIUM [Suspect]
     Indication: OSTEOARTHRITIS
     Dosage: 1 TABLET  2X'S DAILY
     Dates: start: 20080502, end: 20080625

REACTIONS (3)
  - DIALYSIS [None]
  - FLUID RETENTION [None]
  - RENAL TUBULAR NECROSIS [None]
